FAERS Safety Report 15149929 (Version 1)
Quarter: 2018Q3

REPORT INFORMATION
  Report Type: Spontaneous
  Country: IL (occurrence: IL)
  Receive Date: 20180716
  Receipt Date: 20180716
  Transmission Date: 20181010
  Serious: Yes (Other)
  Sender: FDA-Public Use
  Company Number: IL-NOVOPROD-609327

PATIENT
  Age: 1 Month
  Sex: Male
  Weight: 3.8 kg

DRUGS (1)
  1. LEVEMIR PENFILL [Suspect]
     Active Substance: INSULIN DETEMIR
     Indication: PRODUCT USED FOR UNKNOWN INDICATION
     Dosage: 8 U, QD
     Route: 064
     Dates: end: 20170813

REACTIONS (4)
  - Gastrointestinal disorder [Unknown]
  - Haematochezia [Unknown]
  - Hypersensitivity [Unknown]
  - Foetal exposure during pregnancy [Recovered/Resolved]
